FAERS Safety Report 24435013 (Version 2)
Quarter: 2024Q4

REPORT INFORMATION
  Report Type: Spontaneous
  Country: CN (occurrence: CN)
  Receive Date: 20241014
  Receipt Date: 20241017
  Transmission Date: 20250115
  Serious: Yes (Hospitalization, Other)
  Sender: PFIZER
  Company Number: CN-PFIZER INC-PV202400131929

PATIENT
  Age: 57 Year
  Sex: Female
  Weight: 66 kg

DRUGS (2)
  1. TYGACIL [Suspect]
     Active Substance: TIGECYCLINE
     Indication: Sepsis
     Dosage: 100 MG, 1X/DAY
     Route: 041
     Dates: start: 20241005, end: 20241006
  2. SODIUM CHLORIDE [Concomitant]
     Active Substance: SODIUM CHLORIDE
     Indication: Vehicle solution use
     Dosage: 100 ML, 1X/DAY
     Route: 041
     Dates: start: 20241005, end: 20241005

REACTIONS (2)
  - Liver injury [Recovering/Resolving]
  - Yellow skin [Recovering/Resolving]

NARRATIVE: CASE EVENT DATE: 20241006
